FAERS Safety Report 24305911 (Version 1)
Quarter: 2024Q3

REPORT INFORMATION
  Report Type: Report from Study
  Country: JP (occurrence: JP)
  Receive Date: 20240911
  Receipt Date: 20240911
  Transmission Date: 20241016
  Serious: Yes (Other)
  Sender: JOHNSON AND JOHNSON
  Company Number: JP-JNJFOC-20240908012

PATIENT

DRUGS (119)
  1. REMICADE [Suspect]
     Active Substance: INFLIXIMAB
     Indication: Rheumatoid arthritis
     Route: 041
  2. REMICADE [Suspect]
     Active Substance: INFLIXIMAB
     Indication: Juvenile idiopathic arthritis
  3. REMICADE [Suspect]
     Active Substance: INFLIXIMAB
     Indication: Colitis ulcerative
  4. REMICADE [Suspect]
     Active Substance: INFLIXIMAB
     Indication: Psoriasis
  5. REMICADE [Suspect]
     Active Substance: INFLIXIMAB
     Indication: Psoriatic arthropathy
  6. REMICADE [Suspect]
     Active Substance: INFLIXIMAB
     Indication: Behcet^s syndrome
  7. REMICADE [Suspect]
     Active Substance: INFLIXIMAB
     Indication: Crohn^s disease
  8. SIMPONI [Suspect]
     Active Substance: GOLIMUMAB
     Indication: Rheumatoid arthritis
     Route: 058
  9. SIMPONI [Suspect]
     Active Substance: GOLIMUMAB
     Indication: Juvenile idiopathic arthritis
  10. SIMPONI [Suspect]
     Active Substance: GOLIMUMAB
     Indication: Colitis ulcerative
  11. SIMPONI [Suspect]
     Active Substance: GOLIMUMAB
     Indication: Psoriasis
  12. SIMPONI [Suspect]
     Active Substance: GOLIMUMAB
     Indication: Psoriatic arthropathy
  13. SIMPONI [Suspect]
     Active Substance: GOLIMUMAB
     Indication: Behcet^s syndrome
  14. SIMPONI [Suspect]
     Active Substance: GOLIMUMAB
     Indication: Crohn^s disease
  15. TREMFYA [Suspect]
     Active Substance: GUSELKUMAB
     Indication: Rheumatoid arthritis
     Route: 065
  16. TREMFYA [Suspect]
     Active Substance: GUSELKUMAB
     Indication: Juvenile idiopathic arthritis
  17. TREMFYA [Suspect]
     Active Substance: GUSELKUMAB
     Indication: Colitis ulcerative
  18. TREMFYA [Suspect]
     Active Substance: GUSELKUMAB
     Indication: Psoriasis
  19. TREMFYA [Suspect]
     Active Substance: GUSELKUMAB
     Indication: Psoriatic arthropathy
  20. TREMFYA [Suspect]
     Active Substance: GUSELKUMAB
     Indication: Behcet^s syndrome
  21. TREMFYA [Suspect]
     Active Substance: GUSELKUMAB
     Indication: Crohn^s disease
  22. STELARA [Suspect]
     Active Substance: USTEKINUMAB
     Indication: Rheumatoid arthritis
     Route: 058
  23. STELARA [Suspect]
     Active Substance: USTEKINUMAB
     Indication: Juvenile idiopathic arthritis
  24. STELARA [Suspect]
     Active Substance: USTEKINUMAB
     Indication: Colitis ulcerative
  25. STELARA [Suspect]
     Active Substance: USTEKINUMAB
     Indication: Psoriasis
  26. STELARA [Suspect]
     Active Substance: USTEKINUMAB
     Indication: Psoriatic arthropathy
  27. STELARA [Suspect]
     Active Substance: USTEKINUMAB
     Indication: Behcet^s syndrome
  28. STELARA [Suspect]
     Active Substance: USTEKINUMAB
     Indication: Crohn^s disease
  29. ETANERCEPT [Suspect]
     Active Substance: ETANERCEPT
     Indication: Rheumatoid arthritis
     Route: 065
  30. ETANERCEPT [Suspect]
     Active Substance: ETANERCEPT
     Indication: Juvenile idiopathic arthritis
  31. ETANERCEPT [Suspect]
     Active Substance: ETANERCEPT
     Indication: Colitis ulcerative
  32. ETANERCEPT [Suspect]
     Active Substance: ETANERCEPT
     Indication: Psoriasis
  33. ETANERCEPT [Suspect]
     Active Substance: ETANERCEPT
     Indication: Psoriatic arthropathy
  34. ETANERCEPT [Suspect]
     Active Substance: ETANERCEPT
     Indication: Behcet^s syndrome
  35. ETANERCEPT [Suspect]
     Active Substance: ETANERCEPT
     Indication: Crohn^s disease
  36. ADALIMUMAB [Suspect]
     Active Substance: ADALIMUMAB
     Indication: Rheumatoid arthritis
     Route: 065
  37. ADALIMUMAB [Suspect]
     Active Substance: ADALIMUMAB
     Indication: Juvenile idiopathic arthritis
  38. ADALIMUMAB [Suspect]
     Active Substance: ADALIMUMAB
     Indication: Colitis ulcerative
  39. ADALIMUMAB [Suspect]
     Active Substance: ADALIMUMAB
     Indication: Psoriasis
  40. ADALIMUMAB [Suspect]
     Active Substance: ADALIMUMAB
     Indication: Psoriatic arthropathy
  41. ADALIMUMAB [Suspect]
     Active Substance: ADALIMUMAB
     Indication: Behcet^s syndrome
  42. ADALIMUMAB [Suspect]
     Active Substance: ADALIMUMAB
     Indication: Crohn^s disease
  43. CERTOLIZUMAB PEGOL [Suspect]
     Active Substance: CERTOLIZUMAB PEGOL
     Indication: Rheumatoid arthritis
     Route: 065
  44. CERTOLIZUMAB PEGOL [Suspect]
     Active Substance: CERTOLIZUMAB PEGOL
     Indication: Juvenile idiopathic arthritis
  45. CERTOLIZUMAB PEGOL [Suspect]
     Active Substance: CERTOLIZUMAB PEGOL
     Indication: Colitis ulcerative
  46. CERTOLIZUMAB PEGOL [Suspect]
     Active Substance: CERTOLIZUMAB PEGOL
     Indication: Psoriasis
  47. CERTOLIZUMAB PEGOL [Suspect]
     Active Substance: CERTOLIZUMAB PEGOL
     Indication: Psoriatic arthropathy
  48. CERTOLIZUMAB PEGOL [Suspect]
     Active Substance: CERTOLIZUMAB PEGOL
     Indication: Behcet^s syndrome
  49. CERTOLIZUMAB PEGOL [Suspect]
     Active Substance: CERTOLIZUMAB PEGOL
     Indication: Crohn^s disease
  50. ABATACEPT [Suspect]
     Active Substance: ABATACEPT
     Indication: Rheumatoid arthritis
     Route: 065
  51. ABATACEPT [Suspect]
     Active Substance: ABATACEPT
     Indication: Juvenile idiopathic arthritis
  52. ABATACEPT [Suspect]
     Active Substance: ABATACEPT
     Indication: Colitis ulcerative
  53. ABATACEPT [Suspect]
     Active Substance: ABATACEPT
     Indication: Psoriasis
  54. ABATACEPT [Suspect]
     Active Substance: ABATACEPT
     Indication: Psoriatic arthropathy
  55. ABATACEPT [Suspect]
     Active Substance: ABATACEPT
     Indication: Behcet^s syndrome
  56. ABATACEPT [Suspect]
     Active Substance: ABATACEPT
     Indication: Crohn^s disease
  57. TOCILIZUMAB [Suspect]
     Active Substance: TOCILIZUMAB
     Indication: Rheumatoid arthritis
     Route: 065
  58. TOCILIZUMAB [Suspect]
     Active Substance: TOCILIZUMAB
     Indication: Juvenile idiopathic arthritis
  59. TOCILIZUMAB [Suspect]
     Active Substance: TOCILIZUMAB
     Indication: Colitis ulcerative
  60. TOCILIZUMAB [Suspect]
     Active Substance: TOCILIZUMAB
     Indication: Psoriasis
  61. TOCILIZUMAB [Suspect]
     Active Substance: TOCILIZUMAB
     Indication: Psoriatic arthropathy
  62. TOCILIZUMAB [Suspect]
     Active Substance: TOCILIZUMAB
     Indication: Behcet^s syndrome
  63. TOCILIZUMAB [Suspect]
     Active Substance: TOCILIZUMAB
     Indication: Crohn^s disease
  64. CANAKINUMAB [Suspect]
     Active Substance: CANAKINUMAB
     Indication: Rheumatoid arthritis
     Route: 065
  65. CANAKINUMAB [Suspect]
     Active Substance: CANAKINUMAB
     Indication: Juvenile idiopathic arthritis
  66. CANAKINUMAB [Suspect]
     Active Substance: CANAKINUMAB
     Indication: Colitis ulcerative
  67. CANAKINUMAB [Suspect]
     Active Substance: CANAKINUMAB
     Indication: Psoriasis
  68. CANAKINUMAB [Suspect]
     Active Substance: CANAKINUMAB
     Indication: Psoriatic arthropathy
  69. CANAKINUMAB [Suspect]
     Active Substance: CANAKINUMAB
     Indication: Behcet^s syndrome
  70. CANAKINUMAB [Suspect]
     Active Substance: CANAKINUMAB
     Indication: Crohn^s disease
  71. VEDOLIZUMAB [Suspect]
     Active Substance: VEDOLIZUMAB
     Indication: Rheumatoid arthritis
     Route: 065
  72. VEDOLIZUMAB [Suspect]
     Active Substance: VEDOLIZUMAB
     Indication: Juvenile idiopathic arthritis
  73. VEDOLIZUMAB [Suspect]
     Active Substance: VEDOLIZUMAB
     Indication: Colitis ulcerative
  74. VEDOLIZUMAB [Suspect]
     Active Substance: VEDOLIZUMAB
     Indication: Psoriasis
  75. VEDOLIZUMAB [Suspect]
     Active Substance: VEDOLIZUMAB
     Indication: Psoriatic arthropathy
  76. VEDOLIZUMAB [Suspect]
     Active Substance: VEDOLIZUMAB
     Indication: Behcet^s syndrome
  77. VEDOLIZUMAB [Suspect]
     Active Substance: VEDOLIZUMAB
     Indication: Interstitial lung disease
  78. SECUKINUMAB [Suspect]
     Active Substance: SECUKINUMAB
     Indication: Rheumatoid arthritis
     Route: 065
  79. SECUKINUMAB [Suspect]
     Active Substance: SECUKINUMAB
     Indication: Juvenile idiopathic arthritis
  80. SECUKINUMAB [Suspect]
     Active Substance: SECUKINUMAB
     Indication: Colitis ulcerative
  81. SECUKINUMAB [Suspect]
     Active Substance: SECUKINUMAB
     Indication: Psoriasis
  82. SECUKINUMAB [Suspect]
     Active Substance: SECUKINUMAB
     Indication: Psoriatic arthropathy
  83. SECUKINUMAB [Suspect]
     Active Substance: SECUKINUMAB
     Indication: Behcet^s syndrome
  84. SECUKINUMAB [Suspect]
     Active Substance: SECUKINUMAB
     Indication: Crohn^s disease
  85. BRODALUMAB [Suspect]
     Active Substance: BRODALUMAB
     Indication: Rheumatoid arthritis
     Route: 065
  86. BRODALUMAB [Suspect]
     Active Substance: BRODALUMAB
     Indication: Juvenile idiopathic arthritis
  87. BRODALUMAB [Suspect]
     Active Substance: BRODALUMAB
     Indication: Colitis ulcerative
  88. BRODALUMAB [Suspect]
     Active Substance: BRODALUMAB
     Indication: Psoriasis
  89. BRODALUMAB [Suspect]
     Active Substance: BRODALUMAB
     Indication: Psoriatic arthropathy
  90. BRODALUMAB [Suspect]
     Active Substance: BRODALUMAB
     Indication: Behcet^s syndrome
  91. BRODALUMAB [Suspect]
     Active Substance: BRODALUMAB
     Indication: Crohn^s disease
  92. RISANKIZUMAB [Suspect]
     Active Substance: RISANKIZUMAB
     Indication: Rheumatoid arthritis
     Route: 065
  93. RISANKIZUMAB [Suspect]
     Active Substance: RISANKIZUMAB
     Indication: Juvenile idiopathic arthritis
  94. RISANKIZUMAB [Suspect]
     Active Substance: RISANKIZUMAB
     Indication: Colitis ulcerative
  95. RISANKIZUMAB [Suspect]
     Active Substance: RISANKIZUMAB
     Indication: Psoriasis
  96. RISANKIZUMAB [Suspect]
     Active Substance: RISANKIZUMAB
     Indication: Psoriatic arthropathy
  97. RISANKIZUMAB [Suspect]
     Active Substance: RISANKIZUMAB
     Indication: Behcet^s syndrome
  98. RISANKIZUMAB [Suspect]
     Active Substance: RISANKIZUMAB
     Indication: Crohn^s disease
  99. TILDRAKIZUMAB [Suspect]
     Active Substance: TILDRAKIZUMAB
     Indication: Rheumatoid arthritis
     Route: 065
  100. TILDRAKIZUMAB [Suspect]
     Active Substance: TILDRAKIZUMAB
     Indication: Juvenile idiopathic arthritis
  101. TILDRAKIZUMAB [Suspect]
     Active Substance: TILDRAKIZUMAB
     Indication: Colitis ulcerative
  102. TILDRAKIZUMAB [Suspect]
     Active Substance: TILDRAKIZUMAB
     Indication: Psoriasis
  103. TILDRAKIZUMAB [Suspect]
     Active Substance: TILDRAKIZUMAB
     Indication: Psoriatic arthropathy
  104. TILDRAKIZUMAB [Suspect]
     Active Substance: TILDRAKIZUMAB
     Indication: Behcet^s syndrome
  105. TILDRAKIZUMAB [Suspect]
     Active Substance: TILDRAKIZUMAB
     Indication: Crohn^s disease
  106. IXEKIZUMAB [Suspect]
     Active Substance: IXEKIZUMAB
     Indication: Rheumatoid arthritis
     Route: 065
  107. IXEKIZUMAB [Suspect]
     Active Substance: IXEKIZUMAB
     Indication: Juvenile idiopathic arthritis
  108. IXEKIZUMAB [Suspect]
     Active Substance: IXEKIZUMAB
     Indication: Colitis ulcerative
  109. IXEKIZUMAB [Suspect]
     Active Substance: IXEKIZUMAB
     Indication: Psoriasis
  110. IXEKIZUMAB [Suspect]
     Active Substance: IXEKIZUMAB
     Indication: Psoriatic arthropathy
  111. IXEKIZUMAB [Suspect]
     Active Substance: IXEKIZUMAB
     Indication: Behcet^s syndrome
  112. IXEKIZUMAB [Suspect]
     Active Substance: IXEKIZUMAB
     Indication: Crohn^s disease
  113. SARILUMAB [Suspect]
     Active Substance: SARILUMAB
     Indication: Rheumatoid arthritis
     Route: 065
  114. SARILUMAB [Suspect]
     Active Substance: SARILUMAB
     Indication: Juvenile idiopathic arthritis
  115. SARILUMAB [Suspect]
     Active Substance: SARILUMAB
     Indication: Colitis ulcerative
  116. SARILUMAB [Suspect]
     Active Substance: SARILUMAB
     Indication: Psoriasis
  117. SARILUMAB [Suspect]
     Active Substance: SARILUMAB
     Indication: Psoriatic arthropathy
  118. SARILUMAB [Suspect]
     Active Substance: SARILUMAB
     Indication: Behcet^s syndrome
  119. SARILUMAB [Suspect]
     Active Substance: SARILUMAB
     Indication: Crohn^s disease

REACTIONS (1)
  - Interstitial lung disease [Unknown]
